FAERS Safety Report 15278336 (Version 1)
Quarter: 2018Q3

REPORT INFORMATION
  Report Type: Spontaneous
  Country: DE (occurrence: DE)
  Receive Date: 20180814
  Receipt Date: 20180814
  Transmission Date: 20181010
  Serious: Yes (Other)
  Sender: FDA-Public Use
  Company Number: PHHY2018DE071852

PATIENT
  Age: 1 Day
  Sex: Female

DRUGS (4)
  1. LEVETIRACETAM. [Suspect]
     Active Substance: LEVETIRACETAM
     Indication: FOETAL EXPOSURE DURING PREGNANCY
     Dosage: MATERNAL DOSE: 1000MG/D, QD (0 ? 40.1 GESTATIONAL WEEK)
     Route: 064
     Dates: start: 20161025
  2. FOLIO FORTE [Concomitant]
     Active Substance: FOLIC ACID\VITAMINS
     Dosage: MATERNAL DOSE: 0.8MG/D, QD (6.6 ? 40.1 GESTATIONAL WEEK NAHRUNGSERG?NZUNGSMITTEL)
     Route: 064
     Dates: start: 20170802
  3. LEVETIRACETAM. [Suspect]
     Active Substance: LEVETIRACETAM
     Dosage: MATERNAL DOSE: 1000MG/D, QD (0 ? 40.1 GESTATIONAL WEEK)
     Route: 064
     Dates: start: 20170802
  4. FOLIO FORTE [Concomitant]
     Active Substance: FOLIC ACID\VITAMINS
     Indication: FOETAL EXPOSURE DURING PREGNANCY
     Dosage: MATERNAL DOSE: 0.8MG/D, QD (6.6 ? 40.1 GESTATIONAL WEEK NAHRUNGSERG?NZUNGSMITTEL)
     Route: 064
     Dates: start: 20161212

REACTIONS (1)
  - Small for dates baby [Recovering/Resolving]

NARRATIVE: CASE EVENT DATE: 20170802
